FAERS Safety Report 10211168 (Version 1)
Quarter: 2014Q2

REPORT INFORMATION
  Report Type: Report from Study
  Country: US (occurrence: US)
  Receive Date: 20140602
  Receipt Date: 20140602
  Transmission Date: 20141212
  Serious: No
  Sender: FDA-Public Use
  Company Number: US-ABBVIE-13P-163-1169489-00

PATIENT
  Sex: Female

DRUGS (1)
  1. MARINOL [Suspect]
     Indication: DECREASED APPETITE

REACTIONS (3)
  - Pain [Not Recovered/Not Resolved]
  - Mood altered [Not Recovered/Not Resolved]
  - Therapeutic response changed [Not Recovered/Not Resolved]
